FAERS Safety Report 4286033-7 (Version None)
Quarter: 2004Q1

REPORT INFORMATION
  Report Type: 
  Country: None (occurrence: None)
  Receive Date: 20040205
  Receipt Date: 20031031
  Transmission Date: 20041129
  Serious: Yes (Disabling, Other)
  Sender: FDA-Public Use
  Company Number: PHNU2003DE03902

PATIENT
  Age: 15 Year
  Sex: Female
  Weight: 50 kg

DRUGS (3)
  1. GLEEVEC [Suspect]
     Indication: CHRONIC MYELOID LEUKAEMIA
     Dosage: UNKNOWN
     Route: 048
     Dates: end: 20030501
  2. LITALIR [Concomitant]
     Indication: CHRONIC MYELOID LEUKAEMIA
     Dosage: UNKNOWN
     Route: 065
     Dates: end: 20030501
  3. CELLCEPT [Concomitant]
     Indication: STEM CELL TRANSPLANT
     Dosage: UNKNOWN
     Route: 065
     Dates: start: 20030501

REACTIONS (5)
  - AMYOTROPHIC LATERAL SCLEROSIS [None]
  - GENERAL PHYSICAL HEALTH DETERIORATION [None]
  - GRAFT VERSUS HOST DISEASE [None]
  - PANCYTOPENIA [None]
  - STEM CELL TRANSPLANT [None]
